FAERS Safety Report 9410528 (Version 1)
Quarter: 2013Q3

REPORT INFORMATION
  Report Type: Spontaneous
  Country: US (occurrence: None)
  Receive Date: 20130718
  Receipt Date: 20130718
  Transmission Date: 20140515
  Serious: Yes (Other)
  Sender: FDA-Public Use
  Company Number: None

PATIENT
  Age: 46 Year
  Sex: Female
  Weight: 95.26 kg

DRUGS (1)
  1. CYMBALTA [Suspect]
     Indication: DEPRESSION
     Route: 048
     Dates: start: 20130607, end: 20130710

REACTIONS (3)
  - Oropharyngeal blistering [None]
  - Dysphagia [None]
  - Eating disorder [None]
